FAERS Safety Report 18566894 (Version 4)
Quarter: 2021Q1

REPORT INFORMATION
  Report Type: Report from Study
  Country: None (occurrence: NO)
  Receive Date: 20201201
  Receipt Date: 20210112
  Transmission Date: 20210419
  Serious: Yes (Hospitalization, Other)
  Sender: FDA-Public Use
  Company Number: NO-ABBVIE-20K-122-3668784-00

PATIENT
  Age: 66 Year
  Sex: Female
  Weight: 80 kg

DRUGS (4)
  1. DUODOPA [Suspect]
     Active Substance: CARBIDOPA\LEVODOPA
     Indication: PARKINSON^S DISEASE
     Dosage: THERAPY DURATION: REMAINS AT 16H
     Route: 050
     Dates: start: 20200922
  2. MADOPARK DEPOT [Concomitant]
     Indication: PRODUCT USED FOR UNKNOWN INDICATION
  3. DUODOPA [Suspect]
     Active Substance: CARBIDOPA\LEVODOPA
     Dosage: CURRENT DOSAGE: MORNING DOSE: 8 ML, CONTINUOUS DOSE: 4.3 ML/H,?EXTRA DOSE: 1.5 ML.
     Route: 050
     Dates: start: 20210107
  4. ACETYLSALICYLIC ACID [Concomitant]
     Active Substance: ASPIRIN
     Indication: MYOCARDIAL INFARCTION

REACTIONS (14)
  - Hypokalaemia [Unknown]
  - Unevaluable event [Unknown]
  - Hyperkinesia [Not Recovered/Not Resolved]
  - Renal failure [Unknown]
  - Pneumonia [Recovered/Resolved]
  - Blood potassium decreased [Recovering/Resolving]
  - On and off phenomenon [Unknown]
  - Walking aid user [Unknown]
  - Middle insomnia [Unknown]
  - Poor quality sleep [Not Recovered/Not Resolved]
  - Gastrostomy [Unknown]
  - Abdominal pain upper [Unknown]
  - Musculoskeletal stiffness [Unknown]
  - Fatigue [Not Recovered/Not Resolved]

NARRATIVE: CASE EVENT DATE: 2020
